FAERS Safety Report 9728340 (Version 1)
Quarter: 2013Q4

REPORT INFORMATION
  Report Type: Report from Study
  Country: JP (occurrence: JP)
  Receive Date: 20131204
  Receipt Date: 20131204
  Transmission Date: 20140711
  Serious: Yes (Other)
  Sender: FDA-Public Use
  Company Number: PHHY2013JP140506

PATIENT
  Age: 43 Year
  Sex: Male

DRUGS (18)
  1. LEPONEX / CLOZARIL [Suspect]
     Indication: SCHIZOPHRENIA, RESIDUAL TYPE
     Dosage: 12.5 MG, DAILY
     Route: 048
     Dates: start: 20120216, end: 20120216
  2. LEPONEX / CLOZARIL [Suspect]
     Dosage: 25 MG, DAILY
     Route: 048
     Dates: start: 20120217, end: 20120219
  3. LEPONEX / CLOZARIL [Suspect]
     Dosage: 50 MG, DAILY
     Route: 048
     Dates: start: 20120220, end: 20120222
  4. LEPONEX / CLOZARIL [Suspect]
     Dosage: 75 MG, DAILY
     Route: 048
     Dates: start: 20120223, end: 20120224
  5. LEPONEX / CLOZARIL [Suspect]
     Dosage: 100 MG, DAILY
     Route: 048
     Dates: start: 20120225, end: 20120226
  6. LEPONEX / CLOZARIL [Suspect]
     Dosage: 125 MG, DAILY
     Route: 048
     Dates: start: 20120227, end: 20120229
  7. LEPONEX / CLOZARIL [Suspect]
     Dosage: 150 MG, DAILY
     Route: 048
     Dates: start: 20120301, end: 20120303
  8. LEPONEX / CLOZARIL [Suspect]
     Dosage: 175 MG, DAILY
     Route: 048
     Dates: start: 20120304, end: 20120306
  9. LEPONEX / CLOZARIL [Suspect]
     Dosage: 200 MG, DAILY
     Route: 048
     Dates: start: 20120307, end: 20120404
  10. LEPONEX / CLOZARIL [Suspect]
     Dosage: 250 MG, DAILY
     Route: 048
     Dates: start: 20120405, end: 20120411
  11. LEPONEX / CLOZARIL [Suspect]
     Dosage: 300 MG, DAILY
     Route: 048
     Dates: start: 20120412, end: 20120502
  12. LEPONEX / CLOZARIL [Suspect]
     Dosage: 250 MG, DAILY
     Route: 048
     Dates: start: 20120503, end: 20120704
  13. LEPONEX / CLOZARIL [Suspect]
     Dosage: 275 MG, DAILY
     Route: 048
     Dates: start: 20120705, end: 20120718
  14. LEPONEX / CLOZARIL [Suspect]
     Dosage: 300 MG, DAILY
     Route: 048
     Dates: start: 20120719, end: 20120815
  15. LEPONEX / CLOZARIL [Suspect]
     Dosage: 350 MG, DAILY
     Route: 048
     Dates: start: 20120816
  16. MAGMITT [Concomitant]
     Indication: CONSTIPATION
     Dosage: 1320 MG, UNK
     Route: 048
     Dates: start: 20120216
  17. MAGMITT [Concomitant]
     Dosage: 1000 MG, UNK
     Route: 048
  18. LEUCON [Concomitant]
     Indication: PROPHYLAXIS
     Dosage: 20 MG, UNK
     Route: 048
     Dates: start: 20120404, end: 20120508

REACTIONS (9)
  - Alanine aminotransferase increased [Recovered/Resolved]
  - Orthostatic hypotension [Recovered/Resolved]
  - Malaise [Not Recovered/Not Resolved]
  - Pyrexia [Recovered/Resolved]
  - Aspartate aminotransferase increased [Recovered/Resolved]
  - Blood pressure systolic increased [Unknown]
  - Lymphocyte count decreased [Unknown]
  - Heart rate increased [Unknown]
  - Eosinophil count increased [Unknown]
